FAERS Safety Report 8668302 (Version 2)
Quarter: 2012Q4

REPORT INFORMATION
  Report Type: 
  Country: DE (occurrence: DE)
  Receive Date: 20120717
  Receipt Date: 20121012
  Transmission Date: 20130627
  Serious: Yes (Other)
  Sender: FDA-Public Use
  Company Number: DE-B.I. PHARMACEUTICALS,INC./RIDGEFIELD-2012-DE-01644DE

PATIENT
  Age: 61 Year
  Sex: Male
  Weight: 64 kg

DRUGS (4)
  1. PRADAXA [Suspect]
     Indication: ATRIAL FIBRILLATION
     Dosage: 220 mg
     Route: 048
     Dates: start: 20120124, end: 20120209
  2. AMLODIPIN 10 [Concomitant]
     Indication: HYPERTENSION
     Dosage: 1 anz
     Dates: start: 200806
  3. METOPROLOL SUCC 95 [Concomitant]
     Indication: HYPERTENSION
     Dosage: 2 anz
     Dates: start: 200911
  4. DIGITOXIN 0.07 [Concomitant]
     Indication: ATRIAL FIBRILLATION
     Dosage: 1 anz
     Dates: start: 201201

REACTIONS (1)
  - Liver function test abnormal [Unknown]
